FAERS Safety Report 10176300 (Version 1)
Quarter: 2014Q2

REPORT INFORMATION
  Report Type: Spontaneous
  Country: US (occurrence: None)
  Receive Date: 20140515
  Receipt Date: 20140515
  Transmission Date: 20141212
  Serious: Yes (Life-Threatening, Hospitalization, Other)
  Sender: FDA-Public Use
  Company Number: None

PATIENT
  Age: 60 Year
  Sex: Female
  Weight: 81.65 kg

DRUGS (12)
  1. ALENDRONATE SODIUM [Suspect]
     Indication: FRACTURE
     Route: 048
     Dates: start: 20140320, end: 20140405
  2. ALENDRONATE SODIUM [Suspect]
     Indication: PROPHYLAXIS
     Route: 048
     Dates: start: 20140320, end: 20140405
  3. ASACOL [Concomitant]
  4. CALCIUM [Concomitant]
  5. PRILOSEC [Concomitant]
  6. PLAQUENIL [Concomitant]
  7. CLARITIN [Concomitant]
  8. PREDNISONE [Concomitant]
  9. TYLENOL [Concomitant]
  10. GABAPENTIN [Concomitant]
  11. DIGOXIN [Concomitant]
  12. VIT D [Concomitant]

REACTIONS (27)
  - Restlessness [None]
  - Irritability [None]
  - Visual impairment [None]
  - Dysgeusia [None]
  - Thirst [None]
  - Foaming at mouth [None]
  - Toothache [None]
  - Nausea [None]
  - Dysphagia [None]
  - Chest pain [None]
  - Abdominal distension [None]
  - Abdominal distension [None]
  - Abdominal pain upper [None]
  - Diarrhoea [None]
  - Insomnia [None]
  - Decreased appetite [None]
  - Rectal haemorrhage [None]
  - Burning sensation [None]
  - Pyrexia [None]
  - Haematemesis [None]
  - Diarrhoea [None]
  - Syncope [None]
  - Fall [None]
  - Headache [None]
  - Asthenia [None]
  - Adverse drug reaction [None]
  - Feeling abnormal [None]
